FAERS Safety Report 9493908 (Version 1)
Quarter: 2013Q3

REPORT INFORMATION
  Report Type: Spontaneous
  Country: FR (occurrence: FR)
  Receive Date: 20130903
  Receipt Date: 20130903
  Transmission Date: 20140515
  Serious: Yes (Disabling)
  Sender: FDA-Public Use
  Company Number: FR-BIOGENIDEC-2013BI080986

PATIENT
  Age: 46 Year
  Sex: Male

DRUGS (5)
  1. TYSABRI [Suspect]
     Indication: MULTIPLE SCLEROSIS
     Route: 042
     Dates: start: 201003, end: 20130425
  2. LIORESAL [Concomitant]
     Route: 048
     Dates: start: 201107
  3. FORLAX [Concomitant]
  4. EDUCTYL [Concomitant]
     Route: 054
     Dates: start: 201107
  5. OMEXEL [Concomitant]
     Dates: start: 201107

REACTIONS (1)
  - Iridocyclitis [Recovered/Resolved with Sequelae]
